FAERS Safety Report 6706683-5 (Version None)
Quarter: 2010Q2

REPORT INFORMATION
  Report Type: 
  Country: None (occurrence: None)
  Receive Date: 20100503
  Receipt Date: 20100331
  Transmission Date: 20101027
  Serious: No
  Sender: FDA-Public Use
  Company Number: US-BAYER-201013856BCC

PATIENT
  Age: 61 Year
  Sex: Female
  Weight: 61 kg

DRUGS (9)
  1. ALEVE (CAPLET) [Suspect]
     Indication: PAIN
     Route: 048
  2. ALKA-SELTZER PLUS LIQUID GELS NIGHT [Suspect]
     Indication: NASOPHARYNGITIS
     Route: 048
  3. ORIGINAL ALKA-SELTZER TABLETS [Suspect]
     Indication: HEADACHE
     Dosage: TOTAL DAILY DOSE: 2 DF  UNIT DOSE: 1 DF
     Route: 048
     Dates: start: 20100301, end: 20100301
  4. ORIGINAL ALKA-SELTZER TABLETS [Suspect]
     Dosage: TOTAL DAILY DOSE: 2 DF  UNIT DOSE: 1 DF
     Route: 048
     Dates: start: 20100329
  5. VITAMIN B COMPLEX TAB [Concomitant]
     Route: 065
  6. VITAMIN C [Concomitant]
     Route: 065
  7. FISH OIL [Concomitant]
     Route: 065
  8. ESTER C [Concomitant]
     Route: 065
  9. VISION FORMULA [Concomitant]
     Route: 065

REACTIONS (8)
  - ABDOMINAL PAIN [None]
  - DIARRHOEA [None]
  - DYSGEUSIA [None]
  - DYSPEPSIA [None]
  - INSOMNIA [None]
  - MALAISE [None]
  - PAIN [None]
  - RESTLESSNESS [None]
